FAERS Safety Report 8461167 (Version 3)
Quarter: 2012Q4

REPORT INFORMATION
  Report Type: Report from Study
  Country: FR (occurrence: FR)
  Receive Date: 20120315
  Receipt Date: 20120911
  Transmission Date: 20130627
  Serious: Yes (Death, Hospitalization)
  Sender: FDA-Public Use
  Company Number: FR-ROCHE-1048348

PATIENT
  Age: 78 Year
  Sex: Male
  Weight: 51 kg

DRUGS (10)
  1. VEMURAFENIB [Suspect]
     Indication: MALIGNANT MELANOMA
     Route: 048
     Dates: start: 20120202, end: 20120302
  2. AMANTADINE HYDROCHLORIDE [Suspect]
     Indication: PRODUCT USED FOR UNKNOWN INDICATION
     Route: 065
  3. AMANTADINE HYDROCHLORIDE [Suspect]
     Route: 065
  4. MADOPAR [Suspect]
     Indication: PRODUCT USED FOR UNKNOWN INDICATION
     Route: 065
  5. CARBIDOPA/LEVODOPA [Suspect]
     Indication: PRODUCT USED FOR UNKNOWN INDICATION
     Route: 065
  6. ROPINIROLE HYDROCHLORIDE [Suspect]
     Indication: PRODUCT USED FOR UNKNOWN INDICATION
     Dosage: 2 DOSES DAILY
     Route: 048
  7. ROPINIROLE HYDROCHLORIDE [Suspect]
     Dosage: 1 DOSES DAILY
     Route: 048
  8. FLUTAMIDE [Concomitant]
  9. LEVODOPA [Concomitant]
  10. CARBIDOPA [Concomitant]

REACTIONS (3)
  - Myocardial infarction [Fatal]
  - Confusional state [Unknown]
  - Extrapyramidal disorder [Unknown]
